FAERS Safety Report 5829546-6 (Version None)
Quarter: 2008Q3

REPORT INFORMATION
  Report Type: 
  Country: None (occurrence: None)
  Receive Date: 20080731
  Receipt Date: 20080724
  Transmission Date: 20090109
  Serious: Yes (Hospitalization)
  Sender: FDA-Public Use
  Company Number: AU-PFIZER INC-2006137623

PATIENT
  Sex: Female
  Weight: 112 kg

DRUGS (7)
  1. SU-011,248 [Suspect]
     Indication: RENAL CELL CARCINOMA
     Route: 048
  2. ATENOLOL [Concomitant]
     Route: 048
  3. MAXOLON [Concomitant]
     Route: 048
     Dates: start: 20061016
  4. RENITEC [Concomitant]
     Route: 048
  5. LANSOPRAZOLE [Concomitant]
     Route: 048
  6. ANASTROZOLE [Concomitant]
     Route: 048
     Dates: start: 20011101
  7. TEMAZEPAM [Concomitant]
     Route: 048

REACTIONS (3)
  - ASTHENIA [None]
  - LETHARGY [None]
  - URINARY TRACT DISORDER [None]
